FAERS Safety Report 5514592-2 (Version None)
Quarter: 2007Q4

REPORT INFORMATION
  Report Type: 
  Country: None (occurrence: None)
  Receive Date: 20071113
  Receipt Date: 20071106
  Transmission Date: 20080405
  Serious: Yes (Hospitalization)
  Sender: FDA-Public Use
  Company Number: B0494977A

PATIENT
  Age: 35 Year
  Sex: Male
  Weight: 65 kg

DRUGS (4)
  1. AUGMENTIN '500' [Suspect]
     Indication: INFECTION
     Dosage: 1.2G TWICE PER DAY
     Route: 042
     Dates: start: 20071101
  2. FORTUM [Concomitant]
  3. SERRATIOPEPTIDASE [Concomitant]
  4. TRAMADOL [Concomitant]
     Indication: PAIN
     Dates: start: 20071026

REACTIONS (2)
  - DRUG INEFFECTIVE [None]
  - PHARMACEUTICAL PRODUCT COMPLAINT [None]
